FAERS Safety Report 24290562 (Version 1)
Quarter: 2024Q3

REPORT INFORMATION
  Report Type: Spontaneous
  Country: US (occurrence: None)
  Receive Date: 20240905
  Receipt Date: 20240905
  Transmission Date: 20241017
  Serious: Yes (Hospitalization)
  Sender: Public
  Company Number: None

PATIENT
  Sex: Female

DRUGS (3)
  1. EVEROLIMUS [Suspect]
     Active Substance: EVEROLIMUS
     Indication: Endometrial cancer
     Dosage: FREQUENCY : DAILY;?
     Route: 048
     Dates: start: 202407
  2. LETROZOLE [Suspect]
     Active Substance: LETROZOLE
     Indication: Endometrial cancer
     Dosage: FREQUENCY : DAILY;?
     Route: 048
     Dates: start: 202407
  3. LENVIMA [Concomitant]

REACTIONS (6)
  - Dyspnoea [None]
  - Nausea [None]
  - Vomiting [None]
  - Pyrexia [None]
  - Abdominal discomfort [None]
  - Cough [None]
